FAERS Safety Report 17581779 (Version 1)
Quarter: 2020Q1

REPORT INFORMATION
  Report Type: Spontaneous
  Country: FR (occurrence: FR)
  Receive Date: 20200325
  Receipt Date: 20200325
  Transmission Date: 20200409
  Serious: Yes (Hospitalization)
  Sender: FDA-Public Use
  Company Number: FR-MYLANLABS-2020M1030658

PATIENT
  Age: 44 Year
  Sex: Female
  Weight: 81 kg

DRUGS (23)
  1. NOXAFIL [Concomitant]
     Active Substance: POSACONAZOLE
  2. LEVOTHYROX [Concomitant]
     Active Substance: LEVOTHYROXINE
  3. SANDIMMUN [Concomitant]
     Active Substance: CYCLOSPORINE
  4. CASPOFUNGINE MYLAN [Concomitant]
     Active Substance: CASPOFUNGIN ACETATE
  5. HEPARINE                           /00027701/ [Concomitant]
     Active Substance: HEPARIN SODIUM
  6. SOLU-MEDROL [Concomitant]
     Active Substance: METHYLPREDNISOLONE SODIUM SUCCINATE
  7. JAKAVI [Concomitant]
     Active Substance: RUXOLITINIB
  8. GRAFALON [Concomitant]
     Active Substance: LAPINE T-LYMPHOCYTE IMMUNE GLOBULIN
  9. MEROPENEM                          /01250502/ [Concomitant]
     Active Substance: MEROPENEM
  10. ROVALCYTE [Concomitant]
     Active Substance: VALGANCICLOVIR HYDROCHLORIDE
  11. ACICLOVIR MYLAN                    /00587301/ [Concomitant]
     Active Substance: ACYCLOVIR
  12. LOXEN                              /00639802/ [Concomitant]
     Active Substance: NICARDIPINE HYDROCHLORIDE
  13. SOLUPRED                           /00016217/ [Concomitant]
     Active Substance: PREDNISOLONE SODIUM METAZOATE
  14. METHOTREXATE. [Suspect]
     Active Substance: METHOTREXATE
     Indication: ACUTE LYMPHOCYTIC LEUKAEMIA
     Route: 041
     Dates: start: 20191213, end: 20200210
  15. FLUDARABINE TEVA [Suspect]
     Active Substance: FLUDARABINE PHOSPHATE
     Indication: ACUTE LYMPHOCYTIC LEUKAEMIA
     Route: 041
     Dates: start: 20190829, end: 20190901
  16. VALACICLOVIR [Concomitant]
     Active Substance: VALACYCLOVIR HYDROCHLORIDE
  17. METRONIDAZOLE B BRAUN [Concomitant]
     Active Substance: METRONIDAZOLE
  18. CEFTRIAXONE. [Concomitant]
     Active Substance: CEFTRIAXONE
  19. PROGRAF [Suspect]
     Active Substance: TACROLIMUS
     Indication: PROPHYLAXIS AGAINST TRANSPLANT REJECTION
     Route: 041
     Dates: start: 20190905, end: 20191218
  20. PIPERACILLIN AND TAZOBACTAM [Concomitant]
     Active Substance: PIPERACILLIN SODIUM\TAZOBACTAM SODIUM
  21. ONDANSETRON [Concomitant]
     Active Substance: ONDANSETRON
  22. FLUCONAZOLE KABI [Concomitant]
     Active Substance: FLUCONAZOLE
  23. PANTOPRAZOLE [Concomitant]
     Active Substance: PANTOPRAZOLE

REACTIONS (2)
  - Coma [Recovered/Resolved]
  - Leukoencephalopathy [Not Recovered/Not Resolved]

NARRATIVE: CASE EVENT DATE: 20191219
